FAERS Safety Report 6565961-3 (Version None)
Quarter: 2010Q1

REPORT INFORMATION
  Report Type: 
  Country: None (occurrence: None)
  Receive Date: 20100129
  Receipt Date: 20100129
  Transmission Date: 20100710
  Serious: Yes (Hospitalization)
  Sender: FDA-Public Use
  Company Number: None

PATIENT
  Age: 81 Year
  Sex: Male
  Weight: 76 kg

DRUGS (2)
  1. CLINDAMYCIN [Suspect]
     Dosage: 300 MG QID PO
     Route: 048
     Dates: start: 20091204, end: 20091214
  2. CEPHALEXIN [Suspect]
     Dosage: 500 MG BID PO
     Route: 048
     Dates: start: 20100106, end: 20100113

REACTIONS (1)
  - CLOSTRIDIUM DIFFICILE COLITIS [None]
